FAERS Safety Report 21630781 (Version 3)
Quarter: 2022Q4

REPORT INFORMATION
  Report Type: Spontaneous
  Country: FR (occurrence: FR)
  Receive Date: 20221123
  Receipt Date: 20221205
  Transmission Date: 20230113
  Serious: Yes (Death, Life-Threatening, Hospitalization, Other)
  Sender: FDA-Public Use
  Company Number: FR-SCD-010302-01

PATIENT
  Age: 69 Year
  Sex: Male

DRUGS (4)
  1. METFORMIN [Suspect]
     Active Substance: METFORMIN HYDROCHLORIDE
     Indication: Type 2 diabetes mellitus
     Dosage: 1000 MILLIGRAM, 3 TIMES A DAY
     Route: 065
  2. NOREPINEPHRINE [Concomitant]
     Active Substance: NOREPINEPHRINE
     Indication: Haemodynamic instability
     Dosage: UNK
     Route: 065
  3. TERLIPRESSIN [Concomitant]
     Active Substance: TERLIPRESSIN
     Indication: Haemodynamic instability
     Dosage: UNK
     Route: 065
  4. EPINEPHRINE [Concomitant]
     Active Substance: EPINEPHRINE
     Indication: Haemodynamic instability
     Dosage: UNK
     Route: 065

REACTIONS (14)
  - Coma [Fatal]
  - Overdose [Fatal]
  - Hepatic cytolysis [Fatal]
  - Haemodynamic instability [Fatal]
  - Lactic acidosis [Fatal]
  - Multiple organ dysfunction syndrome [Fatal]
  - Nervous system disorder [Fatal]
  - Weight decreased [Fatal]
  - General physical health deterioration [Fatal]
  - Acute hepatic failure [Fatal]
  - Drug level increased [Fatal]
  - Toxicity to various agents [Fatal]
  - Acute kidney injury [Fatal]
  - Hepatitis fulminant [Fatal]

NARRATIVE: CASE EVENT DATE: 20210201
